FAERS Safety Report 14516314 (Version 3)
Quarter: 2018Q1

REPORT INFORMATION
  Report Type: Report from Study
  Country: None (occurrence: US)
  Receive Date: 20180211
  Receipt Date: 20180221
  Transmission Date: 20180509
  Serious: Yes (Other)
  Sender: FDA-Public Use
  Company Number: US-ABBVIE-18K-163-2247303-00

PATIENT
  Age: 51 Year
  Sex: Male
  Weight: 70.82 kg

DRUGS (3)
  1. HUMIRA [Suspect]
     Active Substance: ADALIMUMAB
     Route: 058
     Dates: start: 20180214, end: 20180214
  2. HUMIRA [Suspect]
     Active Substance: ADALIMUMAB
     Indication: CROHN^S DISEASE
     Route: 058
     Dates: start: 2011, end: 2013
  3. HUMIRA [Suspect]
     Active Substance: ADALIMUMAB
     Route: 058
     Dates: end: 2015

REACTIONS (16)
  - Crohn^s disease [Recovering/Resolving]
  - Exposure to mould [Recovering/Resolving]
  - Mycotoxicosis [Recovering/Resolving]
  - Colonoscopy abnormal [Recovering/Resolving]
  - Colitis [Not Recovered/Not Resolved]
  - Intestinal scarring [Recovered/Resolved]
  - Enteritis [Unknown]
  - Weight decreased [Recovering/Resolving]
  - Fatigue [Recovering/Resolving]
  - Memory impairment [Recovering/Resolving]
  - Amnesia [Recovering/Resolving]
  - Cough [Recovering/Resolving]
  - Fungal infection [Recovering/Resolving]
  - Large intestinal obstruction [Recovered/Resolved]
  - Occupational exposure to air contaminants [Recovering/Resolving]
  - Diarrhoea [Recovering/Resolving]

NARRATIVE: CASE EVENT DATE: 2013
